FAERS Safety Report 24970617 (Version 2)
Quarter: 2025Q1

REPORT INFORMATION
  Report Type: Spontaneous
  Country: US (occurrence: US)
  Receive Date: 20250214
  Receipt Date: 20250219
  Transmission Date: 20250409
  Serious: Yes (Life-Threatening, Other)
  Sender: PFIZER
  Company Number: US-PFIZER INC-PV202500016003

PATIENT
  Age: 28 Year
  Sex: Male

DRUGS (4)
  1. FENTANYL CITRATE [Suspect]
     Active Substance: FENTANYL CITRATE
  2. METHAMPHETAMINE [Suspect]
     Active Substance: METHAMPHETAMINE
  3. COCAINE [Suspect]
     Active Substance: COCAINE
  4. MIDOMAFETAMINE [Suspect]
     Active Substance: MIDOMAFETAMINE

REACTIONS (3)
  - Hyperthermia [Unknown]
  - Acute respiratory distress syndrome [Recovering/Resolving]
  - Multiple organ dysfunction syndrome [Recovering/Resolving]
